FAERS Safety Report 4756315-0 (Version None)
Quarter: 2005Q3

REPORT INFORMATION
  Report Type: 
  Country: None (occurrence: None)
  Receive Date: 20050830
  Receipt Date: 20050526
  Transmission Date: 20060218
  Serious: No
  Sender: FDA-Public Use
  Company Number: US-GLAXOSMITHKLINE-A0560301A

PATIENT
  Age: 25 Year
  Sex: Female

DRUGS (5)
  1. WELLBUTRIN XL [Suspect]
     Indication: DEPRESSION
     Dosage: 150MG PER DAY
     Route: 048
     Dates: start: 20050525
  2. XENICAL [Concomitant]
  3. VALIUM [Concomitant]
  4. WELCHOL [Concomitant]
  5. VITAMINS [Concomitant]

REACTIONS (1)
  - HEADACHE [None]
